FAERS Safety Report 14418032 (Version 5)
Quarter: 2018Q2

REPORT INFORMATION
  Report Type: Spontaneous
  Country: JP (occurrence: JP)
  Receive Date: 20180122
  Receipt Date: 20180613
  Transmission Date: 20180711
  Serious: Yes (Death, Other)
  Sender: FDA-Public Use
  Company Number: JP-BRISTOL-MYERS SQUIBB COMPANY-BMS-2017-018245

PATIENT
  Age: 82 Year
  Sex: Female

DRUGS (7)
  1. OPDIVO [Suspect]
     Active Substance: NIVOLUMAB
     Indication: PRODUCT USED FOR UNKNOWN INDICATION
     Dosage: 96 MG, UNK
     Route: 041
     Dates: start: 20161026, end: 20161026
  2. OPDIVO [Suspect]
     Active Substance: NIVOLUMAB
     Indication: PRODUCT USED FOR UNKNOWN INDICATION
     Dosage: 80 MG, UNK
     Route: 041
     Dates: start: 20170628, end: 20170628
  3. OPDIVO [Suspect]
     Active Substance: NIVOLUMAB
     Indication: NON-SMALL CELL LUNG CANCER
     Dosage: 96.3 MG, UNK
     Route: 041
     Dates: start: 20161012, end: 20161012
  4. OPDIVO [Suspect]
     Active Substance: NIVOLUMAB
     Indication: PRODUCT USED FOR UNKNOWN INDICATION
     Dosage: 94.2 MG, UNK
     Route: 041
     Dates: start: 20161109, end: 20161124
  5. OPDIVO [Suspect]
     Active Substance: NIVOLUMAB
     Indication: PRODUCT USED FOR UNKNOWN INDICATION
     Dosage: 94.2 MG, UNK
     Route: 041
     Dates: start: 20170105, end: 20170119
  6. OPDIVO [Suspect]
     Active Substance: NIVOLUMAB
     Indication: PRODUCT USED FOR UNKNOWN INDICATION
     Dosage: 93 MG, UNK
     Route: 041
     Dates: start: 20161208, end: 20161222
  7. OPDIVO [Suspect]
     Active Substance: NIVOLUMAB
     Indication: PRODUCT USED FOR UNKNOWN INDICATION
     Dosage: 86.4 MG, UNK
     Route: 041
     Dates: start: 20170531, end: 20170531

REACTIONS (3)
  - Malignant neoplasm progression [Fatal]
  - Hepatic function abnormal [Recovering/Resolving]
  - Cystitis noninfective [Recovered/Resolved]

NARRATIVE: CASE EVENT DATE: 20170124
